FAERS Safety Report 11763968 (Version 1)
Quarter: 2015Q4

REPORT INFORMATION
  Report Type: Spontaneous
  Country: US (occurrence: US)
  Receive Date: 20151120
  Receipt Date: 20151120
  Transmission Date: 20160304
  Serious: No
  Sender: FDA-Public Use
  Company Number: US-ELI_LILLY_AND_COMPANY-US201305000164

PATIENT
  Sex: Female

DRUGS (1)
  1. FORTEO [Suspect]
     Active Substance: TERIPARATIDE
     Indication: OSTEOPOROSIS
     Dosage: UNK, QD

REACTIONS (10)
  - Tremor [Unknown]
  - Vertigo [Unknown]
  - Mobility decreased [Unknown]
  - Chills [Unknown]
  - Abdominal distension [Recovered/Resolved]
  - Pruritus [Unknown]
  - Malaise [Unknown]
  - Formication [Unknown]
  - Dizziness [Unknown]
  - Feeling abnormal [Unknown]
